FAERS Safety Report 16039157 (Version 3)
Quarter: 2020Q2

REPORT INFORMATION
  Report Type: Spontaneous
  Country: US (occurrence: US)
  Receive Date: 20190306
  Receipt Date: 20200402
  Transmission Date: 20200713
  Serious: No
  Sender: FDA-Public Use
  Company Number: US-PFIZER INC-2019089948

PATIENT
  Age: 74 Year
  Sex: Female
  Weight: 52.16 kg

DRUGS (3)
  1. IBRANCE [Suspect]
     Active Substance: PALBOCICLIB
     Indication: BONE LESION
     Dosage: 100 MG, 1X/DAY
     Dates: start: 20181225
  2. IBRANCE [Suspect]
     Active Substance: PALBOCICLIB
     Indication: PELVIC NEOPLASM
     Dosage: 125 MG, CYCLIC, (21 DAYS AND STOP FOR 7 DAYS)
     Route: 048
     Dates: start: 201812
  3. SYNTHROID [Concomitant]
     Active Substance: LEVOTHYROXINE SODIUM
     Dosage: 75 UG, 1X/DAY
     Route: 048
     Dates: start: 2005

REACTIONS (6)
  - Nasopharyngitis [Unknown]
  - Product use in unapproved indication [Unknown]
  - Confusional state [Unknown]
  - Cough [Recovering/Resolving]
  - Vertigo [Unknown]
  - Off label use [Unknown]

NARRATIVE: CASE EVENT DATE: 201812
